FAERS Safety Report 23288328 (Version 1)
Quarter: 2023Q4

REPORT INFORMATION
  Report Type: Spontaneous
  Country: ES (occurrence: ES)
  Receive Date: 20231212
  Receipt Date: 20231212
  Transmission Date: 20240110
  Serious: Yes (Other)
  Sender: FDA-Public Use
  Company Number: None

PATIENT
  Age: 5 Year
  Sex: Female

DRUGS (2)
  1. EBASTINE [Suspect]
     Active Substance: EBASTINE
     Dosage: 1 BOTTLE OF 120 ML
     Route: 048
     Dates: start: 2023
  2. BUDESONIDE [Concomitant]
     Active Substance: BUDESONIDE
     Dosage: BUDESONIDE ALDO UNION 200 MICROGRAMS/PUFF SUSPENSION FOR INHALATION IN PRESSURIZED CONTAINER, 1 INHA
     Dates: start: 2023

REACTIONS (3)
  - Repetitive speech [Not Recovered/Not Resolved]
  - Irritability [Not Recovered/Not Resolved]
  - Aggression [Not Recovered/Not Resolved]

NARRATIVE: CASE EVENT DATE: 20231101
